FAERS Safety Report 18606206 (Version 8)
Quarter: 2021Q3

REPORT INFORMATION
  Report Type: Report from Study
  Country: US (occurrence: US)
  Receive Date: 20201211
  Receipt Date: 20210910
  Transmission Date: 20211014
  Serious: Yes (Hospitalization, Other)
  Sender: FDA-Public Use
  Company Number: NVSC2020US323763

PATIENT
  Age: 55 Year
  Sex: Male

DRUGS (6)
  1. INSULIN [Concomitant]
     Active Substance: INSULIN NOS
     Indication: PRODUCT USED FOR UNKNOWN INDICATION
     Dosage: UNK
     Route: 065
  2. ENTRESTO [Suspect]
     Active Substance: SACUBITRIL\VALSARTAN
     Indication: PRODUCT USED FOR UNKNOWN INDICATION
     Dosage: 1 DF (24/26 MG), QD
     Route: 048
     Dates: start: 202011
  3. ASA [Concomitant]
     Active Substance: ASPIRIN
     Indication: PRODUCT USED FOR UNKNOWN INDICATION
     Route: 065
  4. LIPITOR [Concomitant]
     Active Substance: ATORVASTATIN CALCIUM
     Indication: PRODUCT USED FOR UNKNOWN INDICATION
     Dosage: UNK
     Route: 065
  5. ENTRESTO [Suspect]
     Active Substance: SACUBITRIL\VALSARTAN
     Dosage: 0.5 UNK, UNKNOWN
     Route: 065
  6. LASIX [Concomitant]
     Active Substance: FUROSEMIDE
     Indication: PRODUCT USED FOR UNKNOWN INDICATION
     Dosage: UNK, UNKNOWN
     Route: 065

REACTIONS (32)
  - Cerebrovascular accident [Recovering/Resolving]
  - Weight decreased [Unknown]
  - Underdose [Unknown]
  - Throat clearing [Unknown]
  - Abdominal distension [Unknown]
  - Limb deformity [Unknown]
  - Dizziness [Unknown]
  - Wrong technique in product usage process [Unknown]
  - Depressed mood [Unknown]
  - Foot deformity [Unknown]
  - Product dose omission issue [Unknown]
  - Sleep deficit [Unknown]
  - Fatigue [Unknown]
  - Asthenia [Unknown]
  - Therapeutic response unexpected [Recovering/Resolving]
  - Somnolence [Unknown]
  - Dyspnoea [Unknown]
  - Insomnia [Unknown]
  - Gait disturbance [Unknown]
  - Poor quality sleep [Unknown]
  - Hypotension [Unknown]
  - Paranoia [Unknown]
  - Tooth infection [Unknown]
  - Stress [Not Recovered/Not Resolved]
  - Depression [Not Recovered/Not Resolved]
  - Memory impairment [Unknown]
  - Concomitant disease progression [Unknown]
  - Hair colour changes [Unknown]
  - Taste disorder [Unknown]
  - Tooth loss [Unknown]
  - Heart rate increased [Unknown]
  - Inappropriate schedule of product administration [Unknown]

NARRATIVE: CASE EVENT DATE: 20201216
